FAERS Safety Report 19756893 (Version 1)
Quarter: 2021Q3

REPORT INFORMATION
  Report Type: Spontaneous
  Country: US (occurrence: US)
  Receive Date: 20210827
  Receipt Date: 20210827
  Transmission Date: 20211014
  Serious: Yes (Other)
  Sender: FDA-Public Use
  Company Number: US-ENDO PHARMACEUTICALS INC-2021-001645

PATIENT
  Age: 34 Year
  Sex: Male
  Weight: 108.84 kg

DRUGS (4)
  1. TESTOPEL [Suspect]
     Active Substance: TESTOSTERONE
     Dosage: 12 DF, UNKNOWN
     Route: 065
  2. TESTOPEL [Suspect]
     Active Substance: TESTOSTERONE
     Indication: HYPOGONADISM
     Dosage: 12 DF, UNKNOWN
     Route: 065
     Dates: start: 20210106
  3. TESTOPEL [Suspect]
     Active Substance: TESTOSTERONE
     Indication: HYPOGONADISM
     Dosage: 12 DF, UNKNOWN
     Route: 065
     Dates: start: 20210106
  4. TESTOPEL [Suspect]
     Active Substance: TESTOSTERONE
     Dosage: 12 DF, UNKNOWN
     Route: 065

REACTIONS (4)
  - Implant site infection [Unknown]
  - Drug ineffective [Unknown]
  - Device expulsion [Unknown]
  - Prescribed overdose [Unknown]

NARRATIVE: CASE EVENT DATE: 20210303
